FAERS Safety Report 18561195 (Version 1)
Quarter: 2020Q4

REPORT INFORMATION
  Report Type: Report from Study
  Country: RU (occurrence: RU)
  Receive Date: 20201130
  Receipt Date: 20201130
  Transmission Date: 20210114
  Serious: Yes (Death)
  Sender: FDA-Public Use
  Company Number: RU-JNJFOC-A-US2017-163419

PATIENT
  Age: 70 Year
  Sex: Female
  Weight: 55 kg

DRUGS (5)
  1. XARELTO [Concomitant]
     Active Substance: RIVAROXABAN
     Indication: PULMONARY HYPERTENSION
     Route: 048
     Dates: start: 201403, end: 201703
  2. SILDENAFIL. [Concomitant]
     Active Substance: SILDENAFIL
     Indication: PULMONARY HYPERTENSION
     Route: 065
     Dates: start: 20170320
  3. VENTAVIS [Suspect]
     Active Substance: ILOPROST
     Route: 055
  4. TORASEMIDE [Concomitant]
     Active Substance: TORSEMIDE
     Indication: PULMONARY HYPERTENSION
  5. VENTAVIS [Suspect]
     Active Substance: ILOPROST
     Indication: PULMONARY HYPERTENSION
     Route: 055
     Dates: start: 201704

REACTIONS (3)
  - Off label use [Unknown]
  - Non-cardiogenic pulmonary oedema [Fatal]
  - Sepsis [Fatal]

NARRATIVE: CASE EVENT DATE: 20170323
